FAERS Safety Report 9108570 (Version 1)
Quarter: 2013Q1

REPORT INFORMATION
  Report Type: Spontaneous
  Country: JP (occurrence: JP)
  Receive Date: 20130222
  Receipt Date: 20130222
  Transmission Date: 20140127
  Serious: Yes (Other)
  Sender: FDA-Public Use
  Company Number: JP-009507513-1302JPN009437

PATIENT
  Sex: 0

DRUGS (2)
  1. GASTER [Suspect]
     Route: 048
  2. TS-1 [Suspect]
     Route: 048

REACTIONS (2)
  - Haemorrhage subcutaneous [Unknown]
  - Platelet count decreased [Unknown]
